FAERS Safety Report 9306010 (Version 1)
Quarter: 2013Q2

REPORT INFORMATION
  Report Type: Spontaneous
  Country: US (occurrence: US)
  Receive Date: 20130523
  Receipt Date: 20130523
  Transmission Date: 20140414
  Serious: No
  Sender: FDA-Public Use
  Company Number: US-PFIZER INC-2013156948

PATIENT
  Age: 55 Year
  Sex: Female

DRUGS (4)
  1. LIPITOR [Suspect]
     Indication: BLOOD CHOLESTEROL ABNORMAL
     Dosage: 20 MG DAILY
     Dates: start: 201109
  2. LIPITOR [Suspect]
     Dosage: 20 MG, 4X/WEEK
  3. LIPITOR [Suspect]
     Dosage: UNK
     Dates: end: 2013
  4. ATORVASTATIN CALCIUM [Suspect]
     Dosage: UNK

REACTIONS (1)
  - Alopecia areata [Recovering/Resolving]
